FAERS Safety Report 4848180-8 (Version None)
Quarter: 2005Q4

REPORT INFORMATION
  Report Type: 
  Country: None (occurrence: None)
  Receive Date: 20051208
  Receipt Date: 20051129
  Transmission Date: 20060501
  Serious: Yes (Hospitalization)
  Sender: FDA-Public Use
  Company Number: US-BRISTOL-MYERS SQUIBB COMPANY-13197223

PATIENT
  Age: 55 Year
  Sex: Female
  Weight: 58 kg

DRUGS (15)
  1. CISPLATIN [Suspect]
     Indication: GASTRIC CANCER STAGE IV
     Route: 041
     Dates: start: 20051110, end: 20051110
  2. FLUOROURACIL [Suspect]
     Indication: GASTRIC CANCER STAGE IV
     Route: 041
     Dates: start: 20051115, end: 20051115
  3. ATIVAN [Concomitant]
     Indication: NAUSEA
     Route: 048
  4. ATIVAN [Concomitant]
     Indication: ANXIETY
     Route: 048
  5. COMPAZINE [Concomitant]
     Indication: NAUSEA
     Route: 054
  6. OXYCODONE [Concomitant]
     Indication: PAIN
     Route: 048
     Dates: start: 20051010
  7. HYCODAN [Concomitant]
     Indication: COUGH
     Route: 048
  8. NEULASTA [Concomitant]
     Indication: NEUTROPENIA
     Dates: start: 20051115, end: 20051115
  9. ALOXI [Concomitant]
     Indication: NAUSEA
     Dates: start: 20051111
  10. PHENERGAN HCL [Concomitant]
     Indication: NAUSEA
     Dates: start: 20051111
  11. DECADRON [Concomitant]
     Indication: PREMEDICATION
     Dates: start: 20051110
  12. KYTRIL [Concomitant]
     Indication: PREMEDICATION
     Dates: start: 20051110
  13. MAGNESIUM [Concomitant]
     Indication: ELECTROLYTE SUBSTITUTION THERAPY
     Dates: start: 20051110
  14. POTASSIUM CHLORIDE [Concomitant]
     Indication: ELECTROLYTE SUBSTITUTION THERAPY
     Dates: start: 20051110
  15. COMPAZINE [Concomitant]
     Route: 054

REACTIONS (3)
  - MALNUTRITION [None]
  - MUCOSAL INFLAMMATION [None]
  - WEIGHT DECREASED [None]
